FAERS Safety Report 25972594 (Version 2)
Quarter: 2025Q4

REPORT INFORMATION
  Report Type: Spontaneous
  Country: US (occurrence: None)
  Receive Date: 20251029
  Receipt Date: 20251215
  Transmission Date: 20260117
  Serious: No
  Sender: UCB
  Company Number: US-UCBSA-2025049735

PATIENT
  Age: 48 Year
  Weight: 71.1 kg

DRUGS (1)
  1. BIMZELX [Suspect]
     Active Substance: BIMEKIZUMAB-BKZX
     Indication: Hidradenitis
     Dosage: 320 MILLIGRAM, EV 2 WEEKS(QOW)

REACTIONS (7)
  - Irritable bowel syndrome [Recovering/Resolving]
  - Fatigue [Unknown]
  - Injection site pain [Unknown]
  - Injection site bruising [Unknown]
  - Hidradenitis [Not Recovered/Not Resolved]
  - Condition aggravated [Not Recovered/Not Resolved]
  - Nonspecific reaction [Recovered/Resolved]
